FAERS Safety Report 7759719-7 (Version None)
Quarter: 2011Q3

REPORT INFORMATION
  Report Type: 
  Country: None (occurrence: None)
  Receive Date: 20110919
  Receipt Date: 20110825
  Transmission Date: 20111222
  Serious: Yes (Hospitalization)
  Sender: FDA-Public Use
  Company Number: SE-CEPHALON-2011004923

PATIENT

DRUGS (3)
  1. LENALIDOMIDE [Suspect]
     Dates: start: 20110714
  2. RITUXIMAB [Suspect]
     Dates: start: 20110714
  3. TREANDA [Suspect]
     Route: 042
     Dates: start: 20110714

REACTIONS (6)
  - HEADACHE [None]
  - PYREXIA [None]
  - MYALGIA [None]
  - DYSURIA [None]
  - BLOOD URINE PRESENT [None]
  - RASH [None]
